FAERS Safety Report 20566419 (Version 1)
Quarter: 2022Q1

REPORT INFORMATION
  Report Type: Spontaneous
  Country: TR (occurrence: TR)
  Receive Date: 20220308
  Receipt Date: 20220308
  Transmission Date: 20220423
  Serious: Yes (Other)
  Sender: FDA-Public Use
  Company Number: TR-LGC-010674

PATIENT
  Age: 42 Year
  Sex: Female

DRUGS (1)
  1. FACTIVE [Suspect]
     Active Substance: GEMIFLOXACIN MESYLATE
     Indication: Infection
     Route: 048

REACTIONS (4)
  - Angioedema [Recovered/Resolved]
  - Blood pressure increased [Recovered/Resolved]
  - Rash [Recovered/Resolved]
  - Tachycardia [Recovered/Resolved]
